FAERS Safety Report 4837329-9 (Version None)
Quarter: 2005Q4

REPORT INFORMATION
  Report Type: 
  Country: None (occurrence: None)
  Receive Date: 20051122
  Receipt Date: 20051115
  Transmission Date: 20060501
  Serious: Yes (Hospitalization)
  Sender: FDA-Public Use
  Company Number: L05-ITA-05142-01

PATIENT
  Age: 42 Year
  Sex: Female

DRUGS (1)
  1. CARBAMAZEPINE [Suspect]
     Indication: EPILEPSY
     Dosage: 300 MG QD PO
     Route: 048

REACTIONS (17)
  - BLOOD ALBUMIN DECREASED [None]
  - BLOOD CHOLESTEROL INCREASED [None]
  - BLOOD IMMUNOGLOBULIN A INCREASED [None]
  - DERMATITIS BULLOUS [None]
  - DRUG TOXICITY [None]
  - EYELID OEDEMA [None]
  - HEPATIC STEATOSIS [None]
  - HEPATITIS CHOLESTATIC [None]
  - HEPATOCELLULAR DAMAGE [None]
  - NERVOUS SYSTEM DISORDER [None]
  - OEDEMA PERIPHERAL [None]
  - PORPHYRIA ACUTE [None]
  - PORPHYRIA NON-ACUTE [None]
  - PROTEINURIA [None]
  - RENAL DISORDER [None]
  - RHEUMATOID FACTOR POSITIVE [None]
  - SKIN DISORDER [None]
